FAERS Safety Report 8392947-9 (Version None)
Quarter: 2012Q2

REPORT INFORMATION
  Report Type: 
  Country: None (occurrence: None)
  Receive Date: 20120529
  Receipt Date: 20120522
  Transmission Date: 20120825
  Serious: Yes (Other)
  Sender: FDA-Public Use
  Company Number: PHHY2012BR035908

PATIENT
  Sex: Male
  Weight: 54 kg

DRUGS (5)
  1. EVEROLIMUS [Suspect]
     Indication: PROPHYLAXIS AGAINST TRANSPLANT REJECTION
     Dosage: 2.5 MG, 2 TABLETS AT MORNING, AND 1 TABLET AT NIGHT
     Route: 048
  2. PREDNISONE [Concomitant]
     Dosage: UNK UKN, UNK
  3. NIFEDIPINE [Concomitant]
     Indication: HEART RATE IRREGULAR
     Dosage: 20 MG, BID
     Route: 048
  4. CYCLOSPORINE [Suspect]
     Dosage: 50 MG, UNK
  5. ATENOLOL [Concomitant]
     Indication: HYPERTENSION
     Dosage: UNK 1 TABLET AT MORNING AND 1 TABLET AT NIGHT
     Route: 048

REACTIONS (9)
  - MEMORY IMPAIRMENT [None]
  - INFERTILITY MALE [None]
  - INCORRECT DOSE ADMINISTERED [None]
  - FEELING HOT [None]
  - DIARRHOEA [None]
  - TACHYCARDIA [None]
  - AZOOSPERMIA [None]
  - SPERMATOZOA PROGRESSIVE MOTILITY DECREASED [None]
  - ABDOMINAL PAIN [None]
